FAERS Safety Report 5058064-0 (Version None)
Quarter: 2006Q3

REPORT INFORMATION
  Report Type: 
  Country: None (occurrence: None)
  Receive Date: 20060721
  Receipt Date: 20060714
  Transmission Date: 20061208
  Serious: Yes (Hospitalization)
  Sender: FDA-Public Use
  Company Number: 2006PK01544

PATIENT
  Age: 15952 Day
  Sex: Female

DRUGS (2)
  1. NOLVADEX [Suspect]
     Route: 048
  2. ZOLEDRONAT [Suspect]

REACTIONS (3)
  - HYSTEROSCOPY [None]
  - OOPHORECTOMY [None]
  - UTERINE DILATION AND CURETTAGE [None]
